FAERS Safety Report 19372160 (Version 1)
Quarter: 2021Q2

REPORT INFORMATION
  Report Type: Other
  Country: CN (occurrence: CN)
  Receive Date: 20210604
  Receipt Date: 20210604
  Transmission Date: 20210717
  Serious: Yes (Other)
  Sender: FDA-Public Use
  Company Number: CN-ROCHE-2838523

PATIENT

DRUGS (3)
  1. OXALIPLATIN. [Suspect]
     Active Substance: OXALIPLATIN
     Indication: COLORECTAL CANCER
     Dosage: GIVEN ON DAY1
     Route: 041
  2. HUA CHAN SU JIAO NANG [Suspect]
     Active Substance: CINOBUFAGIN
     Indication: COLORECTAL CANCER
     Dosage: ADMINISTRATED AFTER MEALS, FOR DAY1 TO DAY 14
     Route: 048
  3. CAPECITABINE. [Suspect]
     Active Substance: CAPECITABINE
     Indication: COLORECTAL CANCER
     Dosage: ADMINISTRATED AFTER MEALS, FOR DAY1 TO DAY14
     Route: 048

REACTIONS (5)
  - Hepatic function abnormal [Unknown]
  - Peripheral nerve injury [Unknown]
  - Myelosuppression [Unknown]
  - Gastrointestinal disorder [Unknown]
  - Cardiotoxicity [Unknown]
